FAERS Safety Report 9260752 (Version 2)
Quarter: 2013Q2

REPORT INFORMATION
  Report Type: Spontaneous
  Country: US (occurrence: US)
  Receive Date: 20130429
  Receipt Date: 20130523
  Transmission Date: 20140414
  Serious: No
  Sender: FDA-Public Use
  Company Number: US-009507513-1304USA016752

PATIENT
  Sex: 0

DRUGS (3)
  1. PEGINTRON [Suspect]
     Dosage: UNK
  2. REBETOL [Suspect]
     Route: 048
  3. TELAPREVIR [Suspect]

REACTIONS (1)
  - Drug intolerance [Unknown]
